FAERS Safety Report 9784517 (Version 1)
Quarter: 2013Q4

REPORT INFORMATION
  Report Type: Spontaneous
  Country: US (occurrence: US)
  Receive Date: 20131226
  Receipt Date: 20131226
  Transmission Date: 20140711
  Serious: Yes (Hospitalization)
  Sender: FDA-Public Use
  Company Number: US-B.I. PHARMACEUTICALS,INC./RIDGEFIELD-2013-BI-42942BP

PATIENT
  Age: 49 Year
  Sex: Male

DRUGS (4)
  1. SPIRIVA [Suspect]
     Indication: CHRONIC OBSTRUCTIVE PULMONARY DISEASE
     Dosage: 18 MCG
     Route: 055
     Dates: start: 2011
  2. COMBIVENT [Suspect]
     Indication: CHRONIC OBSTRUCTIVE PULMONARY DISEASE
     Dosage: DOSE PER APPLICATION: 18 MCG / 103 MCG; DAILY DOSE: 144 MCG / 824 MCG
     Route: 055
     Dates: start: 2009, end: 201306
  3. UNKNOWN HEART MEDICINE [Concomitant]
     Indication: HEART RATE INCREASED
     Dosage: (TABLET)
     Route: 048
  4. UNKNOWN HEART MEDICINE [Concomitant]
     Indication: ARRHYTHMIA

REACTIONS (4)
  - Pneumonia [Recovered/Resolved]
  - Appendicitis [Recovered/Resolved]
  - Chronic obstructive pulmonary disease [Not Recovered/Not Resolved]
  - Headache [Not Recovered/Not Resolved]
